FAERS Safety Report 15403877 (Version 2)
Quarter: 2018Q4

REPORT INFORMATION
  Report Type: Spontaneous
  Country: EE (occurrence: EE)
  Receive Date: 20180919
  Receipt Date: 20181114
  Transmission Date: 20190204
  Serious: Yes (Hospitalization, Other)
  Sender: FDA-Public Use
  Company Number: EE-ABBVIE-18P-221-2491320-00

PATIENT
  Age: 45 Year
  Sex: Female

DRUGS (9)
  1. HYDROCHLOROTHIAZIDE. [Concomitant]
     Active Substance: HYDROCHLOROTHIAZIDE
     Indication: PRODUCT USED FOR UNKNOWN INDICATION
  2. INSULIN LISPRO [Concomitant]
     Active Substance: INSULIN LISPRO
     Indication: DIABETES MELLITUS
     Dosage: 4-6 UNITS THREE TIMES A DAY
  3. SEVELAMER [Suspect]
     Active Substance: SEVELAMER
     Indication: IMMUNOSUPPRESSION
     Route: 065
  4. MYCOPHENOLIC ACID. [Suspect]
     Active Substance: MYCOPHENOLIC ACID
     Indication: IMMUNOSUPPRESSION
     Route: 065
  5. CALCITRIOL. [Suspect]
     Active Substance: CALCITRIOL
     Indication: IMMUNOSUPPRESSION
     Route: 065
  6. INSULIN DETEMIR [Concomitant]
     Active Substance: INSULIN DETEMIR
     Indication: DIABETES MELLITUS
     Dosage: TWICE A DAY 6 + 10 UNITS
  7. EPOETIN BETA [Concomitant]
     Active Substance: ERYTHROPOIETIN
     Indication: PRODUCT USED FOR UNKNOWN INDICATION
  8. DYDROGESTERONE W/ESTRADIOL [Concomitant]
     Indication: HORMONE REPLACEMENT THERAPY
  9. TELMISARTAN. [Concomitant]
     Active Substance: TELMISARTAN
     Indication: BLOOD PRESSURE MEASUREMENT
     Dosage: 80 MG X 1

REACTIONS (7)
  - Sinusitis [Unknown]
  - Bronchitis [Unknown]
  - Respiratory tract infection viral [Unknown]
  - Dermatitis [Unknown]
  - Urinary tract infection [Unknown]
  - Anaemia [Unknown]
  - Pathogen resistance [Unknown]
